FAERS Safety Report 15017344 (Version 1)
Quarter: 2018Q2

REPORT INFORMATION
  Report Type: Spontaneous
  Country: US (occurrence: US)
  Receive Date: 20180531
  Receipt Date: 20180531
  Transmission Date: 20180711
  Serious: No
  Sender: FDA-Public Use
  Company Number: None

PATIENT
  Age: 40 Year
  Sex: Female

DRUGS (8)
  1. MELATONIN [Concomitant]
     Active Substance: MELATONIN
  2. ABILIFY [Concomitant]
     Active Substance: ARIPIPRAZOLE
  3. FLONASE [Concomitant]
     Active Substance: FLUTICASONE PROPIONATE
  4. ZOLOFT [Concomitant]
     Active Substance: SERTRALINE HYDROCHLORIDE
  5. BENADRYL [Concomitant]
     Active Substance: DIPHENHYDRAMINE HYDROCHLORIDE
  6. CYMBALTA [Suspect]
     Active Substance: DULOXETINE HYDROCHLORIDE
     Indication: ANXIETY
     Dosage: ?          QUANTITY:90 CAPSULE(S);?
     Route: 048
     Dates: start: 20180222, end: 20180529
  7. IBUPROFEN. [Concomitant]
     Active Substance: IBUPROFEN
  8. CLARITIN [Concomitant]
     Active Substance: LORATADINE

REACTIONS (1)
  - Hallucination, auditory [None]

NARRATIVE: CASE EVENT DATE: 20180529
